FAERS Safety Report 22327655 (Version 1)
Quarter: 2023Q2

REPORT INFORMATION
  Report Type: Spontaneous
  Country: US (occurrence: US)
  Receive Date: 20230516
  Receipt Date: 20230516
  Transmission Date: 20230722
  Serious: No
  Sender: FDA-Public Use
  Company Number: US-RADIUS HEALTH INC.-2022US005333

PATIENT
  Sex: Female

DRUGS (2)
  1. TYMLOS [Suspect]
     Active Substance: ABALOPARATIDE
     Indication: Small intestine carcinoma
     Dosage: 80 MCG, QD
     Route: 058
     Dates: start: 20221007
  2. TYMLOS [Suspect]
     Active Substance: ABALOPARATIDE
     Indication: Malignant connective tissue neoplasm
     Dosage: 80 MCG, QD
     Route: 058
     Dates: start: 20221012

REACTIONS (9)
  - Brain fog [Unknown]
  - Myalgia [Unknown]
  - Gastric disorder [Not Recovered/Not Resolved]
  - Urinary incontinence [Unknown]
  - Constipation [Unknown]
  - Fatigue [Not Recovered/Not Resolved]
  - Nausea [Unknown]
  - Arthralgia [Unknown]
  - Product use in unapproved indication [Unknown]
